FAERS Safety Report 8449653-1 (Version None)
Quarter: 2012Q2

REPORT INFORMATION
  Report Type: 
  Country: None (occurrence: None)
  Receive Date: 20120620
  Receipt Date: 20120611
  Transmission Date: 20120825
  Serious: Yes (Death, Hospitalization, Other)
  Sender: FDA-Public Use
  Company Number: VE-BRISTOL-MYERS SQUIBB COMPANY-16381238

PATIENT
  Age: 77 Year
  Sex: Male

DRUGS (1)
  1. IPILIMUMAB [Suspect]
     Indication: METASTATIC MALIGNANT MELANOMA
     Dosage: DOSE FOR INFUSION 240 MG
     Route: 042
     Dates: start: 20111215, end: 20120302

REACTIONS (3)
  - ADRENAL INSUFFICIENCY [None]
  - DIABETES MELLITUS [None]
  - DEATH [None]
